FAERS Safety Report 23285493 (Version 1)
Quarter: 2023Q4

REPORT INFORMATION
  Report Type: Other
  Country: JP (occurrence: None)
  Receive Date: 20231211
  Receipt Date: 20231211
  Transmission Date: 20240110
  Serious: Yes (Other)
  Sender: FDA-Public Use
  Company Number: JP-ROCHE-3468036

PATIENT

DRUGS (4)
  1. ATEZOLIZUMAB [Suspect]
     Active Substance: ATEZOLIZUMAB
     Indication: Non-small cell lung cancer
     Route: 065
  2. DURVALUMAB [Suspect]
     Active Substance: DURVALUMAB
     Indication: Non-small cell lung cancer
     Route: 065
  3. NIVOLUMAB [Suspect]
     Active Substance: NIVOLUMAB
     Indication: Non-small cell lung cancer
     Route: 065
  4. PEMBROLIZUMAB [Suspect]
     Active Substance: PEMBROLIZUMAB
     Indication: Non-small cell lung cancer
     Route: 065

REACTIONS (16)
  - Rash [Unknown]
  - Pruritus [Unknown]
  - Pneumonitis [Unknown]
  - Hypothyroidism [Unknown]
  - Hepatotoxicity [Unknown]
  - Arthralgia [Unknown]
  - Myocarditis [Unknown]
  - Haematotoxicity [Unknown]
  - Diarrhoea [Unknown]
  - Colitis [Unknown]
  - Encephalitis [Unknown]
  - Type 1 diabetes mellitus [Unknown]
  - Mastitis [Unknown]
  - Nephritis [Unknown]
  - Infusion related reaction [Unknown]
  - Amylase increased [Unknown]
